FAERS Safety Report 9737974 (Version 2)
Quarter: 2013Q4

REPORT INFORMATION
  Report Type: Spontaneous
  Country: US (occurrence: US)
  Receive Date: 20131208
  Receipt Date: 20131208
  Transmission Date: 20140711
  Serious: No
  Sender: FDA-Public Use
  Company Number: US-SA-RENA-1002024

PATIENT
  Sex: Male

DRUGS (1)
  1. RENVELA [Suspect]
     Indication: PRODUCT USED FOR UNKNOWN INDICATION
     Dosage: 3 TABS PO TID WITH MEALS AND 2 TAB PO WITH SNACKS
     Route: 048

REACTIONS (1)
  - Constipation [Recovered/Resolved]
